FAERS Safety Report 9520223 (Version 1)
Quarter: 2013Q3

REPORT INFORMATION
  Report Type: Spontaneous
  Country: CO (occurrence: CO)
  Receive Date: 20130912
  Receipt Date: 20130912
  Transmission Date: 20140515
  Serious: Yes (Other)
  Sender: FDA-Public Use
  Company Number: CO-UCBSA-097401

PATIENT
  Age: 75 Year
  Sex: Female

DRUGS (4)
  1. CERTOLIZUMAB PEGOL [Suspect]
     Indication: RHEUMATOID ARTHRITIS
     Route: 058
     Dates: start: 20130725, end: 20130820
  2. PREDNISOLONE [Concomitant]
     Dosage: DAILY
  3. METHOTREXATE [Concomitant]
     Dosage: 10 MG/6 TABLETS FOR WEEK
  4. ACETAMINOPHEN [Concomitant]
     Dosage: DAILY

REACTIONS (2)
  - Rash generalised [Recovering/Resolving]
  - Injection site swelling [Recovering/Resolving]
